FAERS Safety Report 7477210-2 (Version None)
Quarter: 2011Q2

REPORT INFORMATION
  Report Type: 
  Country: None (occurrence: None)
  Receive Date: 20110512
  Receipt Date: 20110509
  Transmission Date: 20111010
  Serious: Yes (Hospitalization)
  Sender: FDA-Public Use
  Company Number: AT-BRISTOL-MYERS SQUIBB COMPANY-15727670

PATIENT
  Age: 46 Year
  Sex: Male

DRUGS (2)
  1. DICLOFENAC SODIUM [Concomitant]
     Dates: start: 20050101
  2. YERVOY [Suspect]
     Indication: MALIGNANT MELANOMA
     Dates: start: 20110317, end: 20110429

REACTIONS (4)
  - DIARRHOEA [None]
  - ABDOMINAL PAIN [None]
  - DEHYDRATION [None]
  - ASTHENIA [None]
